FAERS Safety Report 11896353 (Version 1)
Quarter: 2016Q1

REPORT INFORMATION
  Report Type: Other
  Country: GB (occurrence: GB)
  Receive Date: 20160107
  Receipt Date: 20160107
  Transmission Date: 20160526
  Serious: Yes (Congenital Anomaly)
  Sender: FDA-Public Use
  Company Number: GB-MYLANLABS-2016M1000138

PATIENT

DRUGS (3)
  1. NEVIRAPINE. [Suspect]
     Active Substance: NEVIRAPINE
     Indication: ASYMPTOMATIC HIV INFECTION
     Dosage: 400 MG, QD
     Route: 064
     Dates: start: 20101007
  2. FOLIC ACID. [Concomitant]
     Active Substance: FOLIC ACID
     Dosage: DO NOT KNOW WHEN FOLIC ACID STARTED.
     Route: 064
  3. TRUVADA [Suspect]
     Active Substance: EMTRICITABINE\TENOFOVIR DISOPROXIL FUMARATE
     Indication: ASYMPTOMATIC HIV INFECTION
     Dosage: 1 DF, QD
     Route: 064
     Dates: start: 20101007

REACTIONS (2)
  - Foetal exposure during pregnancy [Not Recovered/Not Resolved]
  - Congenital genitourinary abnormality [Not Recovered/Not Resolved]

NARRATIVE: CASE EVENT DATE: 20150807
